FAERS Safety Report 17827615 (Version 1)
Quarter: 2020Q2

REPORT INFORMATION
  Report Type: Other
  Country: AT (occurrence: AT)
  Receive Date: 20200527
  Receipt Date: 20200527
  Transmission Date: 20200714
  Serious: Yes (Life-Threatening, Hospitalization)
  Sender: FDA-Public Use
  Company Number: AT-HEALTHCARE PHARMACEUTICALS LTD.-2084196

PATIENT
  Age: 60 Year
  Sex: Male

DRUGS (5)
  1. RITUXIMAB. [Suspect]
     Active Substance: RITUXIMAB
     Route: 065
  2. CYCLOPHOSPHAMIDE. [Suspect]
     Active Substance: CYCLOPHOSPHAMIDE
     Route: 065
  3. VINCRISTINE SULFATE. [Suspect]
     Active Substance: VINCRISTINE SULFATE
     Route: 065
  4. DOXORUBICIN HYDROCHLORIDE. [Suspect]
     Active Substance: DOXORUBICIN HYDROCHLORIDE
     Indication: SPLENIC MARGINAL ZONE LYMPHOMA
     Route: 065
  5. PREDNISONE. [Suspect]
     Active Substance: PREDNISONE
     Route: 065

REACTIONS (10)
  - Herpes simplex [Recovering/Resolving]
  - Herpes simplex encephalitis [Recovering/Resolving]
  - Lymphopenia [Unknown]
  - Confusional state [Recovering/Resolving]
  - Headache [Recovering/Resolving]
  - Bone marrow failure [Unknown]
  - Epilepsy [Recovering/Resolving]
  - Sinusitis [Recovering/Resolving]
  - Febrile neutropenia [Recovering/Resolving]
  - Vomiting [Unknown]
